FAERS Safety Report 6237902-X (Version None)
Quarter: 2009Q2

REPORT INFORMATION
  Report Type: 
  Country: None (occurrence: None)
  Receive Date: 20090620
  Receipt Date: 20090608
  Transmission Date: 20091009
  Serious: Yes (Hospitalization)
  Sender: FDA-Public Use
  Company Number: IE-MYLANLABS-2009S1010252

PATIENT
  Age: 54 Year
  Sex: Female

DRUGS (4)
  1. CLARITHROMYCIN [Suspect]
     Indication: LOWER RESPIRATORY TRACT INFECTION
  2. CARBAMAZEPINE [Suspect]
  3. PRIADEL [Suspect]
  4. HALOPERIDOL [Concomitant]

REACTIONS (2)
  - BIPOLAR DISORDER [None]
  - EXTRAPYRAMIDAL DISORDER [None]
